FAERS Safety Report 16005203 (Version 1)
Quarter: 2019Q1

REPORT INFORMATION
  Report Type: Spontaneous
  Country: US (occurrence: US)
  Receive Date: 20190226
  Receipt Date: 20190226
  Transmission Date: 20190418
  Serious: No
  Sender: FDA-Public Use
  Company Number: US-PFIZER INC-2019072783

PATIENT
  Age: 41 Year
  Sex: Female
  Weight: 122.4 kg

DRUGS (1)
  1. GABAPENTIN. [Suspect]
     Active Substance: GABAPENTIN
     Indication: NEURALGIA
     Dosage: 600 MG, UNK (1 IN THE MORNING, 1 AT NOON, 2 IN THE AFTERNOON, AND 2 AT NIGHT)
     Dates: start: 2011

REACTIONS (1)
  - Drug ineffective [Unknown]
